FAERS Safety Report 8582321-4 (Version None)
Quarter: 2012Q3

REPORT INFORMATION
  Report Type: 
  Country: None (occurrence: None)
  Receive Date: 20120727
  Receipt Date: 20120716
  Transmission Date: 20120928
  Serious: Yes (Other)
  Sender: FDA-Public Use
  Company Number: 2012P1049794

PATIENT
  Age: 32 Year
  Sex: Female

DRUGS (1)
  1. TERBUTALINE [Suspect]
     Dosage: SC
     Route: 058

REACTIONS (6)
  - MATERNAL EXPOSURE DURING PREGNANCY [None]
  - FOETAL DEATH [None]
  - DRUG HYPERSENSITIVITY [None]
  - ANAPHYLACTIC REACTION [None]
  - CAESAREAN SECTION [None]
  - SYSTEMIC MASTOCYTOSIS [None]
